FAERS Safety Report 10055867 (Version 1)
Quarter: 2014Q2

REPORT INFORMATION
  Report Type: Spontaneous
  Country: US (occurrence: US)
  Receive Date: 20140403
  Receipt Date: 20140403
  Transmission Date: 20141212
  Serious: Yes (Other)
  Sender: FDA-Public Use
  Company Number: US-MYLANLABS-2014S1006816

PATIENT
  Age: 5 Year
  Sex: Male

DRUGS (7)
  1. CANDESARTAN CILEXETIL [Suspect]
     Indication: PROTEINURIA
     Dosage: THEN INCREASED TO THE HIGHEST TOLERABLE LEVEL
     Route: 065
  2. CICLOSPORIN [Suspect]
     Indication: FOCAL SEGMENTAL GLOMERULOSCLEROSIS
     Dosage: 150 MG/M2/D IN 2 DOSES FOR 6 MONTHS
     Route: 065
  3. TACROLIMUS [Suspect]
     Indication: FOCAL SEGMENTAL GLOMERULOSCLEROSIS
     Dosage: GOAL TROUGH LEVEL OF 5
     Route: 065
  4. TACROLIMUS [Suspect]
     Indication: OFF LABEL USE
     Dosage: GOAL TROUGH LEVEL OF 5
     Route: 065
  5. PREDNISOLONE [Suspect]
     Indication: PROTEINURIA
     Dosage: FOR 4 WEEKS
     Route: 048
  6. PREDNISOLONE [Suspect]
     Indication: PROTEINURIA
     Dosage: 1.5 MG/KG/DOSE EVERY OTHER DAY FOR 4 WEEKS
     Route: 048
  7. ENALAPRIL [Concomitant]
     Indication: PROTEINURIA
     Route: 065

REACTIONS (2)
  - Anaemia [Unknown]
  - Erythropoiesis abnormal [Unknown]
